FAERS Safety Report 17871726 (Version 1)
Quarter: 2020Q2

REPORT INFORMATION
  Report Type: Spontaneous
  Country: CA (occurrence: CA)
  Receive Date: 20200608
  Receipt Date: 20200608
  Transmission Date: 20200714
  Serious: No
  Sender: FDA-Public Use
  Company Number: None

PATIENT
  Age: 27 Year
  Sex: Female
  Weight: 63.9 kg

DRUGS (7)
  1. VIT D [Concomitant]
     Active Substance: VITAMIN D NOS
  2. VYVANSE [Suspect]
     Active Substance: LISDEXAMFETAMINE DIMESYLATE
     Indication: ATTENTION DEFICIT HYPERACTIVITY DISORDER
     Route: 048
     Dates: start: 20191001, end: 20200306
  3. MULTIVITAMIN [Concomitant]
     Active Substance: VITAMINS
  4. MELATONIN [Concomitant]
     Active Substance: MELATONIN
  5. ZINC. [Concomitant]
     Active Substance: ZINC
  6. OMEGA-3 FISH OILS [Concomitant]
  7. PROBIOTIC [Concomitant]
     Active Substance: PROBIOTICS NOS

REACTIONS (5)
  - Anxiety [None]
  - Obsessive-compulsive disorder [None]
  - Hallucination, auditory [None]
  - Affective disorder [None]
  - Paranoia [None]

NARRATIVE: CASE EVENT DATE: 20200306
